FAERS Safety Report 9173466 (Version 1)
Quarter: 2013Q1

REPORT INFORMATION
  Report Type: Spontaneous
  Country: IT (occurrence: None)
  Receive Date: 20130314
  Receipt Date: 20130314
  Transmission Date: 20140127
  Serious: Yes (Hospitalization)
  Sender: FDA-Public Use
  Company Number: 2013-03710

PATIENT
  Age: 37 Year
  Sex: Female

DRUGS (5)
  1. MIRTAZAPINE [Suspect]
     Indication: PERSONALITY DISORDER
     Dosage: 15 UNITS, ORAL
     Route: 048
     Dates: start: 20130225, end: 20130225
  2. OLANZAPINE [Suspect]
     Indication: PERSONALITY DISORDER
     Dosage: 10 UNITS, ORAL
     Route: 048
     Dates: start: 20130225, end: 20130225
  3. TEGRETOL (CARBAMAZEPINE) UNKNOWN [Suspect]
     Indication: PERSONALITY DISORDER
     Dosage: 6 UNITS, ORAL
     Route: 048
     Dates: start: 20130225, end: 20130225
  4. RISPERDAL (RISPERIDONE) [Concomitant]
  5. AMISULPRIDE [Concomitant]

REACTIONS (5)
  - Confusional state [None]
  - Somnolence [None]
  - Intentional overdose [None]
  - Overdose [None]
  - Drug abuse [None]
